FAERS Safety Report 8794089 (Version 1)
Quarter: 2012Q4

REPORT INFORMATION
  Report Type: 
  Country: US (occurrence: US)
  Receive Date: 20120918
  Receipt Date: 20120918
  Transmission Date: 20130627
  Serious: No
  Sender: FDA-Public Use
  Company Number: US-BIOGENIDEC-2012BI037261

PATIENT
  Sex: Female
  Weight: 69 kg

DRUGS (11)
  1. TYSABRI [Suspect]
     Indication: MULTIPLE SCLEROSIS
     Route: 042
     Dates: start: 20071029, end: 20080514
  2. COPAXONE [Concomitant]
     Indication: MULTIPLE SCLEROSIS
  3. SINGULAIR [Concomitant]
     Route: 048
  4. SYMBICORT [Concomitant]
     Dosage: Dose unit:2
     Route: 055
  5. ALBUTEROL INHALER [Concomitant]
  6. NEURONTIN [Concomitant]
     Route: 048
  7. TRAMADOL [Concomitant]
     Route: 048
  8. DICLOFENAC [Concomitant]
     Route: 048
  9. LIDODERM PATCH [Concomitant]
     Dosage: Dose unit:3
     Route: 062
  10. NORCO [Concomitant]
     Dosage: Dose unit:4
     Route: 048
  11. MELATONIN [Concomitant]

REACTIONS (1)
  - Nausea [Unknown]
